FAERS Safety Report 13569926 (Version 2)
Quarter: 2017Q3

REPORT INFORMATION
  Report Type: Spontaneous
  Country: US (occurrence: US)
  Receive Date: 20170522
  Receipt Date: 20170816
  Transmission Date: 20171127
  Serious: Yes (Other)
  Sender: FDA-Public Use
  Company Number: US-ABBVIE-17P-163-1983089-00

PATIENT
  Age: 63 Year
  Sex: Female
  Weight: 89 kg

DRUGS (1)
  1. LEVOTHYROXINE SODIUM TABLETS, USP [Suspect]
     Active Substance: LEVOTHYROXINE SODIUM
     Indication: THYROIDECTOMY
     Route: 048
     Dates: start: 2000

REACTIONS (8)
  - Dry skin [Unknown]
  - Dysphagia [Unknown]
  - Swelling face [Unknown]
  - Weight increased [Unknown]
  - Hair texture abnormal [Unknown]
  - Drug ineffective [Not Recovered/Not Resolved]
  - Hypotension [Unknown]
  - Hypothyroidism [Unknown]

NARRATIVE: CASE EVENT DATE: 201704
